FAERS Safety Report 21961730 (Version 1)
Quarter: 2023Q1

REPORT INFORMATION
  Report Type: Report from Study
  Country: US (occurrence: US)
  Receive Date: 20230207
  Receipt Date: 20230207
  Transmission Date: 20230417
  Serious: Yes (Other)
  Sender: FDA-Public Use
  Company Number: US-BEH-2023154945

PATIENT
  Age: 59 Year
  Sex: Male

DRUGS (1)
  1. HUMAN IMMUNOGLOBULIN G [Suspect]
     Active Substance: HUMAN IMMUNOGLOBULIN G
     Indication: Dermatomyositis
     Dosage: UNK
     Route: 042
     Dates: start: 201801, end: 201902

REACTIONS (11)
  - Drug ineffective for unapproved indication [Unknown]
  - Hypersensitivity [Unknown]
  - Hypersensitivity [Unknown]
  - Fatigue [Unknown]
  - Chills [Unknown]
  - Pyrexia [Unknown]
  - Malaise [Unknown]
  - Palpitations [Unknown]
  - Tachycardia [Unknown]
  - No adverse event [Unknown]
  - Off label use [Unknown]
